FAERS Safety Report 9869582 (Version 1)
Quarter: 2014Q1

REPORT INFORMATION
  Report Type: Spontaneous
  Country: GB (occurrence: None)
  Receive Date: 20140131
  Receipt Date: 20140131
  Transmission Date: 20141002
  Serious: Yes (Other)
  Sender: FDA-Public Use
  Company Number: AUR-APL-2014-00587

PATIENT
  Age: 51 Year
  Sex: Male

DRUGS (7)
  1. RIBAVIRIN(RIBAVIRIN) [Suspect]
     Indication: HEPATITIS C
     Dates: start: 20130706
  2. INCIVO (TELAPREVIR) [Suspect]
     Indication: HEPATITIS C
     Route: 048
     Dates: start: 20130510, end: 20130807
  3. PEGINTERFERON ALFA-2A [Suspect]
     Indication: HEPATITIS C
     Dates: start: 20130706
  4. ATAZANAVIR(ATAZANAVIR) [Concomitant]
  5. LAMIVUDINE(LAMIVUDINE) [Concomitant]
  6. L-THYROXINE(LEVOTHYROXINE) [Concomitant]
  7. RITONAVIR(RITONAVIR) [Concomitant]

REACTIONS (6)
  - Thrombocytopenia [None]
  - Renal impairment [None]
  - Anaemia [None]
  - White blood cell count decreased [None]
  - Prothrombin time prolonged [None]
  - Prothrombin time shortened [None]
